FAERS Safety Report 5130988-5 (Version None)
Quarter: 2006Q4

REPORT INFORMATION
  Report Type: 
  Country: None (occurrence: None)
  Receive Date: 20060829
  Receipt Date: 20060612
  Transmission Date: 20070319
  Serious: Yes (Hospitalization)
  Sender: FDA-Public Use
  Company Number: PHEH2006US06954

PATIENT
  Age: 26 Year
  Sex: Female
  Weight: 145.1 kg

DRUGS (4)
  1. EXJADE [Suspect]
     Indication: BLOOD IRON INCREASED
     Dosage: SEE IMAGE
     Route: 048
     Dates: start: 20060315, end: 20060321
  2. FOLIC ACID [Concomitant]
  3. LASIX [Concomitant]
  4. ZELNORM [Concomitant]

REACTIONS (9)
  - DIARRHOEA [None]
  - EAR INFECTION [None]
  - FUNGAL INFECTION [None]
  - NAUSEA [None]
  - PELVIC INFLAMMATORY DISEASE [None]
  - PYREXIA [None]
  - SINUSITIS [None]
  - UTERINE INFECTION [None]
  - VOMITING [None]
